FAERS Safety Report 13433368 (Version 1)
Quarter: 2017Q2

REPORT INFORMATION
  Report Type: Spontaneous
  Country: US (occurrence: US)
  Receive Date: 20170412
  Receipt Date: 20170412
  Transmission Date: 20170830
  Serious: Yes (Hospitalization, Other)
  Sender: FDA-Public Use
  Company Number: US-APOTEX-2017AP009990

PATIENT
  Age: 20 Year
  Sex: Male

DRUGS (8)
  1. LORAZEPAM. [Suspect]
     Active Substance: LORAZEPAM
     Indication: PSYCHOTIC DISORDER
     Dosage: 2 MG, PER DAY
     Route: 065
  2. LITHIUM CARBONATE. [Suspect]
     Active Substance: LITHIUM CARBONATE
     Indication: PARANOIA
     Dosage: 900 MG, PER DAY
     Route: 065
  3. RISPERIDONE. [Suspect]
     Active Substance: RISPERIDONE
     Indication: PSYCHOTIC DISORDER
     Dosage: 6 MG, PER DAY
     Route: 065
  4. HALOPERIDOL. [Suspect]
     Active Substance: HALOPERIDOL
     Indication: DISORIENTATION
     Dosage: 10 MG, PER DAY
     Route: 065
  5. LITHIUM CARBONATE. [Suspect]
     Active Substance: LITHIUM CARBONATE
     Indication: DISORIENTATION
     Dosage: 1500 MG, PE DAY
     Route: 065
  6. LITHIUM CARBONATE. [Suspect]
     Active Substance: LITHIUM CARBONATE
     Indication: PSYCHOTIC DISORDER
  7. HALOPERIDOL. [Suspect]
     Active Substance: HALOPERIDOL
     Indication: PARANOIA
     Dosage: 5 MG,PER DAY
     Route: 065
  8. OLANZAPINE. [Suspect]
     Active Substance: OLANZAPINE
     Indication: PSYCHOTIC DISORDER
     Dosage: 20 MG, PER DAY
     Route: 065

REACTIONS (9)
  - Temporal lobe epilepsy [Recovered/Resolved]
  - Acne [Unknown]
  - Gastrointestinal disorder [Unknown]
  - Headache [Unknown]
  - Fatigue [Unknown]
  - Cognitive disorder [Unknown]
  - Tremor [Unknown]
  - Psychotic disorder [Recovered/Resolved]
  - Somnolence [Unknown]
